FAERS Safety Report 25094716 (Version 2)
Quarter: 2025Q2

REPORT INFORMATION
  Report Type: Spontaneous
  Country: US (occurrence: US)
  Receive Date: 20250319
  Receipt Date: 20250513
  Transmission Date: 20250717
  Serious: No
  Sender: NOVARTIS
  Company Number: US-002147023-NVSC2025US045901

PATIENT
  Age: 68 Year
  Sex: Female

DRUGS (2)
  1. LEQVIO [Suspect]
     Active Substance: INCLISIRAN SODIUM
     Indication: Hyperlipidaemia
     Route: 058
  2. LEQVIO [Suspect]
     Active Substance: INCLISIRAN SODIUM
     Route: 058
     Dates: start: 20240606, end: 20240609

REACTIONS (1)
  - Headache [Unknown]
